FAERS Safety Report 8597652-1 (Version None)
Quarter: 2012Q3

REPORT INFORMATION
  Report Type: 
  Country: None (occurrence: None)
  Receive Date: 20120816
  Receipt Date: 20120807
  Transmission Date: 20120928
  Serious: Yes (Other)
  Sender: FDA-Public Use
  Company Number: BR-AMGEN-BRASP2012016144

PATIENT
  Age: 51 Year
  Sex: Female
  Weight: 65 kg

DRUGS (6)
  1. LOSARTAN POTASSIUM [Concomitant]
     Dosage: 50 MG, 1X/DAY
  2. ENBREL [Suspect]
     Dosage: 25 MG, 2X/WEEK
     Route: 058
     Dates: start: 20090101
  3. NIMESULIDE [Concomitant]
     Indication: PAIN
     Dosage: 100 MG, 1X/DAY
  4. METFORMIN HYDROCHLORIDE [Concomitant]
     Dosage: 100 MG, QD
  5. NIMESULIDE [Concomitant]
     Dosage: 100 MG, 2X/DAY
  6. ENBREL [Suspect]
     Indication: RHEUMATOID ARTHRITIS
     Dosage: 25 MG, 2X/WEEK
     Route: 058
     Dates: start: 20080901

REACTIONS (6)
  - PAIN IN EXTREMITY [None]
  - ARTHRALGIA [None]
  - VOMITING [None]
  - BONE PAIN [None]
  - OEDEMA PERIPHERAL [None]
  - DIABETES MELLITUS INADEQUATE CONTROL [None]
